FAERS Safety Report 5903177-1 (Version None)
Quarter: 2008Q3

REPORT INFORMATION
  Report Type: 
  Country: None (occurrence: None)
  Receive Date: 20080930
  Receipt Date: 20080925
  Transmission Date: 20090109
  Serious: Yes (Death)
  Sender: FDA-Public Use
  Company Number: JP-JNJFOC-20080906334

PATIENT
  Sex: Female

DRUGS (4)
  1. ITRIZOLE [Suspect]
     Indication: FEBRILE NEUTROPENIA
     Route: 041
  2. FAMOTIDINE [Concomitant]
     Indication: REFLUX OESOPHAGITIS
     Route: 042
  3. FUROSEMIDE [Concomitant]
     Indication: HYPERTENSION
     Route: 042
  4. CLINDAMYCIN HCL [Concomitant]
     Route: 042

REACTIONS (3)
  - DISEASE PROGRESSION [None]
  - RENAL IMPAIRMENT [None]
  - WHITE BLOOD CELL COUNT DECREASED [None]
